FAERS Safety Report 7133569-7 (Version None)
Quarter: 2010Q4

REPORT INFORMATION
  Report Type: 
  Country: None (occurrence: None)
  Receive Date: 20101202
  Receipt Date: 20101122
  Transmission Date: 20110411
  Serious: Yes (Death)
  Sender: FDA-Public Use
  Company Number: GR-PFIZER INC-2010155431

PATIENT
  Age: 42 Year
  Sex: Male

DRUGS (2)
  1. METHYLPREDNISOLONE [Suspect]
  2. CYCLOPHOSPHAMIDE [Suspect]

REACTIONS (2)
  - DRUG INEFFECTIVE [None]
  - PULMONARY ALVEOLAR HAEMORRHAGE [None]
